FAERS Safety Report 6679269-9 (Version None)
Quarter: 2010Q2

REPORT INFORMATION
  Report Type: 
  Country: None (occurrence: None)
  Receive Date: 20100413
  Receipt Date: 20100406
  Transmission Date: 20101027
  Serious: Yes (Hospitalization, Other)
  Sender: FDA-Public Use
  Company Number: JP-BAYER-200913004BYL

PATIENT
  Age: 73 Year
  Sex: Male
  Weight: 59 kg

DRUGS (21)
  1. NEXAVAR [Suspect]
     Indication: HEPATIC NEOPLASM MALIGNANT
     Dosage: TOTAL DAILY DOSE: 800 MG  UNIT DOSE: 200 MG
     Route: 048
     Dates: start: 20090702, end: 20090729
  2. NEXAVAR [Suspect]
     Dosage: UNIT DOSE: 200 MG
     Route: 048
     Dates: start: 20090804, end: 20090819
  3. NEXAVAR [Suspect]
     Dosage: UNIT DOSE: 200 MG
     Route: 048
     Dates: start: 20091109, end: 20100303
  4. URSO 250 [Concomitant]
     Dosage: SINCE BEFORE ADMINISTRATION
     Route: 048
     Dates: end: 20090719
  5. URSO 250 [Concomitant]
     Route: 048
     Dates: start: 20090720, end: 20100323
  6. GASMOTIN [Concomitant]
     Dosage: SINCE BEFORE ADMINISTRATION
     Route: 048
     Dates: end: 20100324
  7. LASIX [Concomitant]
     Route: 042
     Dates: start: 20100303, end: 20100309
  8. LASIX [Concomitant]
     Route: 042
     Dates: start: 20100324
  9. LASIX [Concomitant]
     Route: 048
     Dates: start: 20100310, end: 20100323
  10. LASIX [Concomitant]
     Dosage: SINCE BEFORE ADMINISTRATION
     Route: 048
     Dates: end: 20100302
  11. PARIET [Concomitant]
     Dosage: SINCE BEFORE ADMINISTRATION
     Route: 048
     Dates: end: 20100324
  12. HOKUNALIN:TAPE [Concomitant]
     Dosage: SINCE BEFORE ADMINISTRATION
     Route: 062
  13. NAPROXEN [Concomitant]
     Route: 048
     Dates: start: 20091111, end: 20091127
  14. NAPROXEN [Concomitant]
     Route: 048
     Dates: start: 20091128
  15. NAPROXEN [Concomitant]
     Route: 048
     Dates: start: 20090710, end: 20090901
  16. BARACLUDE [Concomitant]
     Dosage: SINCE BEFORE ADMINISTRATION
     Route: 048
  17. METHYCOBAL [Concomitant]
     Route: 065
     Dates: start: 20091104
  18. SOLDACTONE [Concomitant]
     Route: 042
     Dates: start: 20100303, end: 20100309
  19. SOLDACTONE [Concomitant]
     Route: 042
     Dates: start: 20100302, end: 20100302
  20. SOLDACTONE [Concomitant]
     Route: 042
     Dates: start: 20100324
  21. FAMOTIDINE [Concomitant]
     Route: 042
     Dates: start: 20100324

REACTIONS (6)
  - CONJUNCTIVAL HAEMORRHAGE [None]
  - HEPATIC FUNCTION ABNORMAL [None]
  - PALMAR-PLANTAR ERYTHRODYSAESTHESIA SYNDROME [None]
  - PERIORBITAL HAEMATOMA [None]
  - PYREXIA [None]
  - STOMATITIS [None]
